FAERS Safety Report 14147164 (Version 1)
Quarter: 2017Q4

REPORT INFORMATION
  Report Type: Report from Study
  Country: BE (occurrence: BE)
  Receive Date: 20171031
  Receipt Date: 20171031
  Transmission Date: 20180321
  Serious: Yes (Hospitalization)
  Sender: FDA-Public Use
  Company Number: BE-ALEXION-A201711675

PATIENT

DRUGS (23)
  1. AMLOR [Concomitant]
     Active Substance: AMLODIPINE BESYLATE
     Dosage: 10 MG, QD
     Route: 048
     Dates: start: 20170407, end: 20170503
  2. HYDROCORTISONE. [Concomitant]
     Active Substance: HYDROCORTISONE
     Indication: ADRENAL INSUFFICIENCY
     Dosage: 20 MG, BID
     Route: 048
     Dates: start: 20171013
  3. D-CURE [Concomitant]
     Indication: VITAMIN D DEFICIENCY
     Dosage: 25000 IU, QW
     Route: 048
     Dates: start: 20160206
  4. RENVELA [Concomitant]
     Active Substance: SEVELAMER CARBONATE
     Indication: BLOOD PHOSPHORUS ABNORMAL
     Dosage: 800 MG, TID
     Route: 048
     Dates: start: 20160320
  5. TEMESTA                            /00273201/ [Concomitant]
     Active Substance: LORAZEPAM
     Indication: SEDATIVE THERAPY
     Dosage: 1 MG, QD
     Route: 048
     Dates: start: 20160630
  6. ARANESP [Concomitant]
     Active Substance: DARBEPOETIN ALFA
     Indication: ERYTHROPOIESIS ABNORMAL
     Dosage: 60 ?G, Q2W
     Route: 058
     Dates: start: 20161229, end: 20170728
  7. MEDROL [Concomitant]
     Active Substance: METHYLPREDNISOLONE
     Indication: STEROID THERAPY
     Dosage: 4 MG, QD
     Route: 048
     Dates: start: 20170505, end: 20170707
  8. INDERAL [Concomitant]
     Active Substance: PROPRANOLOL HYDROCHLORIDE
     Dosage: 40 MG, QD
     Route: 048
     Dates: start: 20171013
  9. PANTOMED                           /01263204/ [Concomitant]
     Active Substance: PANTOPRAZOLE SODIUM
     Indication: PROPHYLAXIS
     Dosage: 20 MG, QD
     Route: 048
     Dates: start: 20131027
  10. INJECTAFER [Concomitant]
     Active Substance: FERRIC CARBOXYMALTOSE
     Indication: ANAEMIA
     Dosage: 1000 MG, QD
     Route: 042
     Dates: start: 20170707, end: 20170707
  11. ECULIZUMAB [Suspect]
     Active Substance: ECULIZUMAB
     Indication: HAEMOLYTIC URAEMIC SYNDROME
     Route: 065
  12. COVERAM [Concomitant]
     Active Substance: AMLODIPINE\PERINDOPRIL
     Indication: HYPERTENSION
     Dosage: 10 MG, QD
     Route: 048
     Dates: start: 20170503, end: 20170823
  13. TRADONAL [Concomitant]
     Active Substance: TRAMADOL HYDROCHLORIDE
     Indication: PAIN
     Dosage: 50 MG, TID
     Route: 048
     Dates: start: 20171013
  14. DALACIN C                          /00166001/ [Concomitant]
     Indication: ANTIBIOTIC THERAPY
     Dosage: 300 MG, QID
     Route: 048
     Dates: start: 20171014
  15. SINTROM [Concomitant]
     Active Substance: ACENOCOUMAROL
     Indication: ANTICOAGULANT THERAPY
     Dosage: 1 MG, QD
     Route: 048
     Dates: start: 20170505, end: 20170707
  16. LAXOBERON [Concomitant]
     Active Substance: SODIUM PICOSULFATE
     Indication: LAXATIVE SUPPORTIVE CARE
     Dosage: 10 DF, QD
     Route: 048
     Dates: start: 20160720
  17. ARANESP [Concomitant]
     Active Substance: DARBEPOETIN ALFA
     Dosage: UNK
  18. AMLOR [Concomitant]
     Active Substance: AMLODIPINE BESYLATE
     Indication: HYPERTENSION
     Dosage: 10 MG, QD
     Route: 048
     Dates: start: 20090204
  19. ASAFLOW [Concomitant]
     Active Substance: ASPIRIN
     Indication: ANTIPLATELET THERAPY
     Dosage: 80 MG, QD
     Route: 048
     Dates: start: 20160612
  20. ATORVASTATINE                      /01326101/ [Concomitant]
     Active Substance: ATORVASTATIN
     Indication: BLOOD CHOLESTEROL ABNORMAL
     Dosage: 40 MG, QD
     Route: 048
     Dates: start: 20171013
  21. INDERAL [Concomitant]
     Active Substance: PROPRANOLOL HYDROCHLORIDE
     Indication: HYPERTENSION
     Dosage: 40 MG, BID
     Route: 048
     Dates: start: 20160620, end: 20171013
  22. FORLAX [Concomitant]
     Active Substance: POLYETHYLENE GLYCOL 4000
     Indication: LAXATIVE SUPPORTIVE CARE
     Dosage: 20 G, BID
     Route: 048
     Dates: start: 20161229
  23. ARANESP [Concomitant]
     Active Substance: DARBEPOETIN ALFA
     Dosage: 60 ?G, QW
     Route: 058
     Dates: start: 20170728

REACTIONS (1)
  - Abdominal wall infection [Not Recovered/Not Resolved]

NARRATIVE: CASE EVENT DATE: 20171013
